FAERS Safety Report 5409751-3 (Version None)
Quarter: 2007Q3

REPORT INFORMATION
  Report Type: 
  Country: None (occurrence: None)
  Receive Date: 20070809
  Receipt Date: 20070808
  Transmission Date: 20080115
  Serious: Yes (Hospitalization)
  Sender: FDA-Public Use
  Company Number: B0482403A

PATIENT
  Age: 86 Year
  Sex: Female

DRUGS (6)
  1. ARIXTRA [Suspect]
     Dosage: 2.5MG VARIABLE DOSE
     Route: 058
     Dates: start: 20070622, end: 20070630
  2. SKENAN [Suspect]
     Dosage: 30MG TWICE PER DAY
     Route: 048
     Dates: start: 20070628, end: 20070630
  3. LASIX [Suspect]
     Dosage: 40MG PER DAY
     Route: 048
     Dates: start: 20070621
  4. TAREG [Suspect]
     Indication: HYPERTENSION
     Dosage: 160MG PER DAY
     Route: 048
     Dates: start: 20070622, end: 20070630
  5. KETOPROFEN [Suspect]
     Dosage: 150MG SEE DOSAGE TEXT
     Route: 048
     Dates: end: 20070630
  6. EFFEXOR [Concomitant]
     Dosage: 75MG AT NIGHT
     Route: 048
     Dates: start: 20070628

REACTIONS (7)
  - BLADDER DISORDER [None]
  - CONFUSIONAL STATE [None]
  - DISORIENTATION [None]
  - HAEMATOMA [None]
  - HAEMOGLOBIN DECREASED [None]
  - RENAL FAILURE [None]
  - RESPIRATORY DISORDER [None]
